FAERS Safety Report 5876791-X (Version None)
Quarter: 2008Q3

REPORT INFORMATION
  Report Type: 
  Country: None (occurrence: None)
  Receive Date: 20080909
  Receipt Date: 20080909
  Transmission Date: 20090109
  Serious: Yes (Death)
  Sender: FDA-Public Use
  Company Number: None

PATIENT
  Age: 53 Year
  Sex: Female
  Weight: 99.7913 kg

DRUGS (4)
  1. OXYCODONE HCL [Suspect]
     Indication: ARTHRALGIA
     Dosage: 112 TABLETS EVERY 28 DAYS 12 HR PO
     Route: 048
     Dates: start: 19870101, end: 20080319
  2. OXYCODONE HCL [Suspect]
     Indication: BACK PAIN
     Dosage: 112 TABLETS EVERY 28 DAYS 12 HR PO
     Route: 048
     Dates: start: 19870101, end: 20080319
  3. OXYCODONE HCL [Suspect]
     Indication: ARTHRITIS
     Dosage: 96 TABLETS EVERY 28 DAYS 12HR PO
     Route: 048
     Dates: start: 19870101, end: 20080319
  4. OPIOID [Concomitant]

REACTIONS (1)
  - ACCIDENTAL OVERDOSE [None]
